FAERS Safety Report 24387792 (Version 2)
Quarter: 2024Q4

REPORT INFORMATION
  Report Type: Spontaneous
  Country: US (occurrence: US)
  Receive Date: 20241002
  Receipt Date: 20241211
  Transmission Date: 20250115
  Serious: No
  Sender: BLUEPRINT MEDICINES
  Company Number: US-Blueprint Medicines Corporation-4889

PATIENT
  Age: 41 Year
  Sex: Female
  Weight: 70.37 kg

DRUGS (3)
  1. AYVAKIT [Suspect]
     Active Substance: AVAPRITINIB
     Indication: Product used for unknown indication
     Route: 065
     Dates: start: 20240916
  2. FAMOTIDINE [Concomitant]
     Active Substance: FAMOTIDINE
     Indication: Malignant mast cell neoplasm
     Route: 065
     Dates: start: 20240626
  3. SINGULAIR [Concomitant]
     Active Substance: MONTELUKAST SODIUM
     Indication: Malignant mast cell neoplasm
     Route: 065
     Dates: start: 20240626

REACTIONS (1)
  - Peripheral swelling [Recovered/Resolved]
